FAERS Safety Report 9496802 (Version 1)
Quarter: 2013Q3

REPORT INFORMATION
  Report Type: Spontaneous
  Country: US (occurrence: None)
  Receive Date: 20130903
  Receipt Date: 20130903
  Transmission Date: 20140515
  Serious: Yes (Hospitalization)
  Sender: FDA-Public Use
  Company Number: None

PATIENT
  Age: 53 Year
  Sex: Female
  Weight: 63.5 kg

DRUGS (1)
  1. CYCLOSPORIN [Suspect]
     Indication: BONE MARROW TRANSPLANT REJECTION
     Dates: start: 20130429, end: 20130619

REACTIONS (4)
  - Nervous system disorder [None]
  - Walking disability [None]
  - Blindness [None]
  - Memory impairment [None]
